FAERS Safety Report 8507935-9 (Version None)
Quarter: 2012Q3

REPORT INFORMATION
  Report Type: 
  Country: None (occurrence: None)
  Receive Date: 20120709
  Receipt Date: 20120709
  Transmission Date: 20120928
  Serious: Yes (Other)
  Sender: FDA-Public Use
  Company Number: None

PATIENT
  Sex: Female
  Weight: 62.5964 kg

DRUGS (1)
  1. TRAMADOL HCL [Suspect]
     Indication: ABDOMINAL PAIN LOWER
     Dosage: 50MG 1TID PO   ONE DOSE ONLY
     Route: 048
     Dates: start: 20120627, end: 20120701

REACTIONS (1)
  - AMNESIA [None]
